FAERS Safety Report 9580109 (Version 1)
Quarter: 2013Q3

REPORT INFORMATION
  Report Type: Spontaneous
  Country: US (occurrence: None)
  Receive Date: 20130930
  Receipt Date: 20130930
  Transmission Date: 20140515
  Serious: Yes (Other)
  Sender: FDA-Public Use
  Company Number: None

PATIENT
  Age: 81 Year
  Sex: Female
  Weight: 63.5 kg

DRUGS (2)
  1. CIPROFLOXACIN [Suspect]
     Indication: URINARY TRACT INFECTION
     Route: 048
     Dates: start: 20130919, end: 20130921
  2. CIPROFLOXACIN [Suspect]
     Indication: SIALOADENITIS
     Route: 048
     Dates: start: 20130919, end: 20130921

REACTIONS (7)
  - Headache [None]
  - Muscle spasms [None]
  - Neck pain [None]
  - Back pain [None]
  - Impaired self-care [None]
  - Bladder disorder [None]
  - Dyspnoea [None]
